FAERS Safety Report 21301939 (Version 1)
Quarter: 2022Q3

REPORT INFORMATION
  Report Type: Spontaneous
  Country: US (occurrence: None)
  Receive Date: 20220906
  Receipt Date: 20220906
  Transmission Date: 20221027
  Serious: Yes (Hospitalization)
  Sender: FDA-Public Use
  Company Number: None

PATIENT
  Age: 61 Year
  Sex: Male
  Weight: 70.3 kg

DRUGS (3)
  1. ISOVUE 370 [Suspect]
     Active Substance: IOPAMIDOL
     Indication: Computerised tomogram coronary artery
     Dosage: OTHER FREQUENCY : ONCE;?
     Route: 040
     Dates: start: 20220902, end: 20220903
  2. METOPROLOL [Concomitant]
     Active Substance: METOPROLOL
     Dates: start: 20220902, end: 20220902
  3. NITROGLYCERIN [Concomitant]
     Dates: start: 20220902, end: 20220902

REACTIONS (3)
  - Tongue injury [None]
  - Confusional state [None]
  - Generalised tonic-clonic seizure [None]

NARRATIVE: CASE EVENT DATE: 20220902
